FAERS Safety Report 4850377-8 (Version None)
Quarter: 2005Q4

REPORT INFORMATION
  Report Type: 
  Country: None (occurrence: None)
  Receive Date: 20051123
  Receipt Date: 20050818
  Transmission Date: 20060501
  Serious: No
  Sender: FDA-Public Use
  Company Number: 216071

PATIENT
  Age: 43 Year
  Sex: Male
  Weight: 117.9 kg

DRUGS (2)
  1. RAPTIVA [Suspect]
     Indication: PSORIASIS
     Dosage: 1.2 ML, 1/WEEK, SUBCUTANEOUS
     Route: 058
     Dates: end: 20050620
  2. ULTRAVATE OINTMENT (HALOBETASOL PROPIONATE) [Concomitant]

REACTIONS (1)
  - LEUKOCYTOSIS [None]
